FAERS Safety Report 20824482 (Version 4)
Quarter: 2022Q2

REPORT INFORMATION
  Report Type: Report from Study
  Country: US (occurrence: None)
  Receive Date: 20220513
  Receipt Date: 20220607
  Transmission Date: 20220720
  Serious: Yes (Death, Hospitalization)
  Sender: FDA-Public Use
  Company Number: US-ROCHE-3091739

PATIENT
  Age: 62 Year
  Sex: Female
  Weight: 62 kg

DRUGS (1)
  1. ATEZOLIZUMAB [Suspect]
     Active Substance: ATEZOLIZUMAB
     Indication: Cholangiocarcinoma
     Dosage: CYCLE=28DAY  , 840 MG ON DAY 1 AND 15,  ON 09/JUL/2018: LAST DOSE OF ATEZOLIZUMAB ADMINISTERED (MPDL
     Route: 042
     Dates: start: 20180709, end: 20180709

REACTIONS (3)
  - Disease progression [Fatal]
  - Dyspnoea [Recovered/Resolved with Sequelae]
  - Hypotension [Not Recovered/Not Resolved]

NARRATIVE: CASE EVENT DATE: 20180715
